FAERS Safety Report 11319854 (Version 1)
Quarter: 2015Q3

REPORT INFORMATION
  Report Type: Spontaneous
  Country: US (occurrence: None)
  Receive Date: 20150728
  Receipt Date: 20150728
  Transmission Date: 20151125
  Serious: No
  Sender: FDA-Public Use
  Company Number: None

PATIENT
  Age: 70 Year
  Sex: Female

DRUGS (15)
  1. ALPRAZOLAM. [Concomitant]
     Active Substance: ALPRAZOLAM
  2. PEG [Concomitant]
     Active Substance: POLYETHYLENE GLYCOLS
  3. CARVEDILOL. [Concomitant]
     Active Substance: CARVEDILOL
  4. CHLORHEXADINE [Concomitant]
     Active Substance: CHLORHEXIDINE
  5. SIMETHICONE (DIMETHICONE) [Concomitant]
     Active Substance: DIMETHICONE
  6. TRAZODONE [Concomitant]
     Active Substance: TRAZODONE HYDROCHLORIDE
  7. SIMVASTATIN. [Concomitant]
     Active Substance: SIMVASTATIN
  8. WARFARIN [Suspect]
     Active Substance: WARFARIN
     Indication: AORTIC VALVE REPLACEMENT
     Dosage: HELD  DAILY  PO
     Route: 048
     Dates: end: 20150527
  9. ABACAVIR. [Concomitant]
     Active Substance: ABACAVIR
  10. MAGNESIUM OXIDE. [Concomitant]
     Active Substance: MAGNESIUM OXIDE
  11. MULTIVITAMIN [Concomitant]
     Active Substance: VITAMINS
  12. SPIRONOLACTONE. [Concomitant]
     Active Substance: SPIRONOLACTONE
  13. TEMAZEPAM. [Concomitant]
     Active Substance: TEMAZEPAM
  14. ACETAMINOPHEN. [Concomitant]
     Active Substance: ACETAMINOPHEN
  15. ZINC OXIDE. [Concomitant]
     Active Substance: ZINC OXIDE

REACTIONS (2)
  - Haematuria [None]
  - International normalised ratio increased [None]

NARRATIVE: CASE EVENT DATE: 20150501
